FAERS Safety Report 6886848-2 (Version None)
Quarter: 2010Q3

REPORT INFORMATION
  Report Type: 
  Country: None (occurrence: None)
  Receive Date: 20100730
  Receipt Date: 20100720
  Transmission Date: 20110219
  Serious: Yes (Other)
  Sender: FDA-Public Use
  Company Number: GB-PFIZER INC-2010068965

PATIENT
  Age: 73 Year
  Sex: Male
  Weight: 85 kg

DRUGS (4)
  1. ARTHROTEC [Suspect]
     Indication: ARTHRITIS
     Dosage: UNK MG, 3X/DAY
     Route: 048
     Dates: start: 20050201
  2. SIMVASTATIN [Concomitant]
  3. ALLOPURINOL [Concomitant]
  4. CHONDROITIN/GLUCOSAMINE [Concomitant]

REACTIONS (2)
  - KNEE OPERATION [None]
  - URINARY TRACT INFECTION [None]
